FAERS Safety Report 10056314 (Version 2)
Quarter: 2015Q1

REPORT INFORMATION
  Report Type: Spontaneous
  Country: US (occurrence: None)
  Receive Date: 20140401
  Receipt Date: 20150220
  Transmission Date: 20150720
  Serious: Yes (Death)
  Sender: FDA-Public Use
  Company Number: 201403099

PATIENT
  Age: 61 Year
  Sex: Male

DRUGS (8)
  1. ATORVASTATIN (ATORVASTATIN) [Concomitant]
     Active Substance: ATORVASTATIN
  2. NUVIGIL [Concomitant]
     Active Substance: ARMODAFINIL
  3. TESTIM [Suspect]
     Active Substance: TESTOSTERONE
     Indication: BLOOD TESTOSTERONE DECREASED
     Dates: start: 20120420, end: 20130321
  4. BUPROPION (BUPROPION) [Concomitant]
     Active Substance: BUPROPION
  5. VYVANSE [Concomitant]
     Active Substance: LISDEXAMFETAMINE DIMESYLATE
  6. DILTIAZEM ER (DILTIAZEM HYDROCHLORIDE) [Concomitant]
  7. LOSARTAN (LOSARTAN) [Concomitant]
     Active Substance: LOSARTAN
  8. SUBOXONE (NALOXONE HYDROCHLORIDE, BUPRENORPHINE HYCDROCHLORIDE) [Concomitant]

REACTIONS (6)
  - Urinary retention [None]
  - Myocardial infarction [None]
  - Nausea [None]
  - Constipation [None]
  - Unresponsive to stimuli [None]
  - Abdominal pain [None]

NARRATIVE: CASE EVENT DATE: 20130321
